FAERS Safety Report 7992393-3 (Version None)
Quarter: 2011Q4

REPORT INFORMATION
  Report Type: 
  Country: None (occurrence: None)
  Receive Date: 20111219
  Receipt Date: 20110324
  Transmission Date: 20120403
  Serious: No
  Sender: FDA-Public Use
  Company Number: US-ASTRAZENECA-2011SE16824

PATIENT
  Age: 83 Year
  Sex: Male

DRUGS (5)
  1. THYROID TAB [Concomitant]
  2. NEXIUM [Concomitant]
  3. PLAVIX [Concomitant]
  4. CRESTOR [Suspect]
     Route: 048
     Dates: start: 20110317
  5. AZOR [Concomitant]

REACTIONS (3)
  - ABDOMINAL PAIN UPPER [None]
  - HEADACHE [None]
  - DIARRHOEA [None]
